FAERS Safety Report 5757115-5 (Version None)
Quarter: 2008Q2

REPORT INFORMATION
  Report Type: 
  Country: None (occurrence: None)
  Receive Date: 20080603
  Receipt Date: 20080523
  Transmission Date: 20081010
  Serious: No
  Sender: FDA-Public Use
  Company Number: US-MERCK-0706USA00982

PATIENT
  Age: 46 Year
  Sex: Female
  Weight: 66 kg

DRUGS (3)
  1. FOSAMAX [Suspect]
     Indication: OSTEOPOROSIS
     Route: 048
     Dates: start: 20041101, end: 20060301
  2. SYNTHROID [Concomitant]
     Indication: HYPOTHYROIDISM
     Route: 065
  3. LUPRON [Concomitant]
     Route: 065

REACTIONS (7)
  - BLOOD CHOLESTEROL INCREASED [None]
  - BRONCHITIS VIRAL [None]
  - DYSLIPIDAEMIA [None]
  - GINGIVAL BLEEDING [None]
  - GINGIVAL PAIN [None]
  - PAIN IN JAW [None]
  - RESORPTION BONE INCREASED [None]
